FAERS Safety Report 9222425 (Version 1)
Quarter: 2013Q2

REPORT INFORMATION
  Report Type: Spontaneous
  Country: US (occurrence: US)
  Receive Date: 20130410
  Receipt Date: 20130410
  Transmission Date: 20140414
  Serious: Yes (Hospitalization)
  Sender: FDA-Public Use
  Company Number: US-BAYER-2013-042787

PATIENT
  Age: 29 Year
  Sex: Female

DRUGS (12)
  1. YASMIN [Suspect]
  2. ALLEGRA [Concomitant]
     Dosage: 1 A DAY
  3. MOMETASONE FUROATE [Concomitant]
     Dosage: 1 PUFF(S), DAILY
     Route: 045
  4. ADVAIR [Concomitant]
     Dosage: 250/50, 1 PUFF 2 TIMES A DAY
  5. MONTELUKAST [Concomitant]
     Dosage: 10 MG, 1 A DAY
  6. LEVALBUTEROL [Concomitant]
     Dosage: 1.25 MG, UNK
     Route: 045
  7. IBUPROFEN [Concomitant]
     Dosage: 800 MG, 1 3 TIMES A DAY.
  8. ZYRTEC [Concomitant]
  9. LODRANE [Concomitant]
     Dosage: 2 A DAY
     Route: 048
  10. DIPHENHYDRAMINE [Concomitant]
     Dosage: 25
  11. PROMETHEGAN [Concomitant]
     Dosage: 25 MG, 1 EVERY 6 HOURS AS NEEDED
  12. ALBUTEROL INHALER [Concomitant]
     Dosage: EVERY 4 HOURS

REACTIONS (1)
  - Pelvic venous thrombosis [None]
